FAERS Safety Report 5021785-X (Version None)
Quarter: 2006Q2

REPORT INFORMATION
  Report Type: 
  Country: None (occurrence: None)
  Receive Date: 20060605
  Receipt Date: 20060520
  Transmission Date: 20061013
  Serious: Yes (Hospitalization)
  Sender: FDA-Public Use
  Company Number: US-2006-012301

PATIENT
  Age: 29 Year
  Sex: Female

DRUGS (1)
  1. BETASERON [Suspect]
     Indication: MULTIPLE SCLEROSIS
     Dosage: 8 MIU EVERY 2 D SUBCUTANEOUS
     Route: 058
     Dates: start: 20051108, end: 20060318

REACTIONS (11)
  - ABDOMINAL DISTENSION [None]
  - ADRENAL DISORDER [None]
  - ARTERIOSCLEROSIS [None]
  - ARTERIOSCLEROSIS CORONARY ARTERY [None]
  - CARDIAC FAILURE CONGESTIVE [None]
  - CONFUSIONAL STATE [None]
  - DIZZINESS [None]
  - HEART RATE DECREASED [None]
  - HYPERAESTHESIA [None]
  - HYPOTENSION [None]
  - WEIGHT INCREASED [None]
